FAERS Safety Report 22125095 (Version 7)
Quarter: 2023Q2

REPORT INFORMATION
  Report Type: Spontaneous
  Country: US (occurrence: US)
  Receive Date: 20230322
  Receipt Date: 20230626
  Transmission Date: 20230721
  Serious: No
  Sender: FDA-Public Use
  Company Number: US-DSJP-DSU-2023-110676AA

PATIENT
  Sex: Female

DRUGS (1)
  1. TURALIO [Suspect]
     Active Substance: PEXIDARTINIB HYDROCHLORIDE
     Indication: Giant cell tumour of tendon sheath
     Dosage: 250 MG, BID
     Route: 048
     Dates: start: 20230302

REACTIONS (19)
  - Blood pressure increased [Not Recovered/Not Resolved]
  - Ageusia [Unknown]
  - Nausea [Recovered/Resolved]
  - Product dose omission in error [Unknown]
  - Somnolence [Not Recovered/Not Resolved]
  - Taste disorder [Not Recovered/Not Resolved]
  - Disturbance in attention [Not Recovered/Not Resolved]
  - Vomiting [Not Recovered/Not Resolved]
  - Confusional state [Not Recovered/Not Resolved]
  - Thinking abnormal [Not Recovered/Not Resolved]
  - Decreased appetite [Not Recovered/Not Resolved]
  - Product dose omission issue [Not Recovered/Not Resolved]
  - Hair colour changes [Not Recovered/Not Resolved]
  - Migraine [Not Recovered/Not Resolved]
  - Vision blurred [Not Recovered/Not Resolved]
  - Visual impairment [Not Recovered/Not Resolved]
  - Illness [Not Recovered/Not Resolved]
  - Fatigue [Not Recovered/Not Resolved]
  - Temperature intolerance [Not Recovered/Not Resolved]

NARRATIVE: CASE EVENT DATE: 20230101
